FAERS Safety Report 13274128 (Version 2)
Quarter: 2017Q1

REPORT INFORMATION
  Report Type: Report from Study
  Country: US (occurrence: US)
  Receive Date: 20170227
  Receipt Date: 20170228
  Transmission Date: 20170428
  Serious: Yes (Hospitalization)
  Sender: FDA-Public Use
  Company Number: US-BIOGEN-2017BI00361709

PATIENT
  Age: 45 Year
  Sex: Female

DRUGS (1)
  1. TYSABRI [Suspect]
     Active Substance: NATALIZUMAB
     Indication: MULTIPLE SCLEROSIS
     Route: 042
     Dates: start: 20140909

REACTIONS (4)
  - Nephrolithiasis [Recovered/Resolved]
  - Cardiovascular disorder [Not Recovered/Not Resolved]
  - Kidney infection [Recovered/Resolved]
  - Arteriovenous fistula [Not Recovered/Not Resolved]

NARRATIVE: CASE EVENT DATE: 201610
